FAERS Safety Report 15240215 (Version 2)
Quarter: 2018Q3

REPORT INFORMATION
  Report Type: Report from Study
  Country: None (occurrence: CO)
  Receive Date: 20180804
  Receipt Date: 20180817
  Transmission Date: 20181010
  Serious: Yes (Other)
  Sender: FDA-Public Use
  Company Number: CO-ABBVIE-18K-036-2441882-00

PATIENT
  Age: 65 Year
  Sex: Male
  Weight: 87 kg

DRUGS (1)
  1. HUMIRA [Suspect]
     Active Substance: ADALIMUMAB
     Indication: RHEUMATOID ARTHRITIS
     Route: 058
     Dates: start: 20100209, end: 20180405

REACTIONS (2)
  - Procedural pain [Unknown]
  - Dental prosthesis user [Recovering/Resolving]

NARRATIVE: CASE EVENT DATE: 201808
